FAERS Safety Report 6130351-4 (Version None)
Quarter: 2009Q1

REPORT INFORMATION
  Report Type: 
  Country: None (occurrence: None)
  Receive Date: 20090324
  Receipt Date: 20090320
  Transmission Date: 20090719
  Serious: No
  Sender: FDA-Public Use
  Company Number: US-B.I. PHARMACEUTICALS,INC./RIDGEFIELD-2009-BP-03432BP

PATIENT
  Sex: Male

DRUGS (1)
  1. AGGRENOX [Suspect]
     Indication: CEREBROVASCULAR ACCIDENT PROPHYLAXIS
     Route: 048
     Dates: start: 20090101

REACTIONS (7)
  - BOWEL MOVEMENT IRREGULARITY [None]
  - FATIGUE [None]
  - FLATULENCE [None]
  - GROIN PAIN [None]
  - HEART RATE IRREGULAR [None]
  - MYALGIA [None]
  - RECTAL HAEMORRHAGE [None]
